FAERS Safety Report 7808777-X (Version None)
Quarter: 2011Q4

REPORT INFORMATION
  Report Type: 
  Country: None (occurrence: None)
  Receive Date: 20111012
  Receipt Date: 20110930
  Transmission Date: 20120403
  Serious: Yes (Hospitalization, Other)
  Sender: FDA-Public Use
  Company Number: PHHY2011JP78137

PATIENT
  Sex: Female
  Weight: 42 kg

DRUGS (16)
  1. PURSENNID [Concomitant]
     Dosage: 36 MG, UNK
     Route: 048
     Dates: start: 20090323, end: 20101129
  2. LIPITOR [Concomitant]
     Dosage: 5 MG, UNK
     Route: 048
     Dates: start: 20100403, end: 20101203
  3. YODEL [Concomitant]
     Dosage: 80 MG, UNK
     Route: 048
     Dates: start: 20101130, end: 20101203
  4. BIO THREE [Concomitant]
     Dosage: 6 DF, UNK
     Route: 048
     Dates: start: 20100902, end: 20100908
  5. DIOVAN [Suspect]
     Dosage: 40 MG, QD
     Route: 048
     Dates: start: 20090323, end: 20090427
  6. DIOVAN [Suspect]
     Dosage: 120 MG, QD
     Route: 048
     Dates: start: 20090915, end: 20091109
  7. NORVASC [Concomitant]
     Indication: HYPERTENSION
     Dosage: 2.5 MG, UNK
     Route: 048
     Dates: start: 20091222, end: 20101203
  8. PA [Concomitant]
     Dosage: 6 DF, UNK
     Route: 048
     Dates: start: 20100921, end: 20100927
  9. DIOVAN [Suspect]
     Dosage: 80 MG, QD
     Route: 048
     Dates: start: 20090428, end: 20090914
  10. DIOVAN [Suspect]
     Dosage: 160 MG, QD
     Route: 048
     Dates: start: 20091110, end: 20101203
  11. ZOLPIDEM [Concomitant]
     Dosage: 5 MG, UNK
     Route: 048
  12. ZOLPIDEM [Concomitant]
     Dosage: 5 MG, UNK
     Route: 048
     Dates: start: 20090323
  13. FLAVITAN [Concomitant]
     Dosage: 30 MG, UNK
     Route: 048
     Dates: start: 20100913, end: 20101203
  14. ZOLPIDEM [Concomitant]
     Dosage: 10 MG, UNK
     Route: 048
     Dates: end: 20101203
  15. DEPAS [Concomitant]
     Dosage: 0.5 MG, UNK
     Route: 048
     Dates: start: 20090323, end: 20100422
  16. KIKYO-TO [Concomitant]
     Dosage: 7.5 G, TID
     Route: 048
     Dates: start: 20090523, end: 20090527

REACTIONS (9)
  - PHARYNGITIS [None]
  - TONSILLITIS [None]
  - LOW DENSITY LIPOPROTEIN INCREASED [None]
  - ARTHRITIS [None]
  - OEDEMA [None]
  - SERONEGATIVE ARTHRITIS [None]
  - STOMATITIS [None]
  - BLOOD PRESSURE DIASTOLIC DECREASED [None]
  - DIARRHOEA [None]
